FAERS Safety Report 12565621 (Version 1)
Quarter: 2016Q3

REPORT INFORMATION
  Report Type: Spontaneous
  Country: US (occurrence: US)
  Receive Date: 20160718
  Receipt Date: 20160718
  Transmission Date: 20161109
  Serious: No
  Sender: FDA-Public Use
  Company Number: US-BAUSCH-BL-2015-030808

PATIENT
  Age: 65 Year
  Sex: Female
  Weight: 102.15 kg

DRUGS (2)
  1. BESIVANCE [Suspect]
     Active Substance: BESIFLOXACIN
     Indication: POSTOPERATIVE CARE
     Route: 047
     Dates: start: 20151217, end: 20151218
  2. PREDNISONE. [Suspect]
     Active Substance: PREDNISONE
     Indication: POSTOPERATIVE CARE
     Route: 047
     Dates: start: 20151217, end: 20151219

REACTIONS (3)
  - Pruritus [Recovering/Resolving]
  - Blister [Recovering/Resolving]
  - Rash erythematous [Recovering/Resolving]

NARRATIVE: CASE EVENT DATE: 20151217
